FAERS Safety Report 16838255 (Version 1)
Quarter: 2019Q3

REPORT INFORMATION
  Report Type: Spontaneous
  Country: GR (occurrence: GR)
  Receive Date: 20190923
  Receipt Date: 20190923
  Transmission Date: 20191005
  Serious: Yes (Other)
  Sender: FDA-Public Use
  Company Number: GR-BAUSCH-BL-2019-026036

PATIENT

DRUGS (6)
  1. CEFUROXIME. [Suspect]
     Active Substance: CEFUROXIME
     Indication: PELVIC ABSCESS
     Route: 065
  2. DOXYCYCLINE. [Suspect]
     Active Substance: DOXYCYCLINE
     Indication: PELVIC ABSCESS
     Route: 065
  3. DOXYCYCLINE. [Suspect]
     Active Substance: DOXYCYCLINE
     Indication: PELVIC INFLAMMATORY DISEASE
     Route: 048
  4. METRONIDAZOLE. [Suspect]
     Active Substance: METRONIDAZOLE
     Indication: PELVIC ABSCESS
     Route: 065
  5. METRONIDAZOLE. [Suspect]
     Active Substance: METRONIDAZOLE
     Indication: PELVIC INFLAMMATORY DISEASE
     Route: 042
  6. CEFUROXIME. [Suspect]
     Active Substance: CEFUROXIME
     Indication: PELVIC INFLAMMATORY DISEASE
     Route: 065

REACTIONS (4)
  - Pelvic inflammatory disease [Recovered/Resolved]
  - Pelvic abscess [Recovered/Resolved]
  - Condition aggravated [Recovered/Resolved]
  - Drug ineffective [Unknown]
